FAERS Safety Report 12085272 (Version 1)
Quarter: 2016Q1

REPORT INFORMATION
  Report Type: Spontaneous
  Country: GB (occurrence: GB)
  Receive Date: 20160217
  Receipt Date: 20160217
  Transmission Date: 20160526
  Serious: Yes (Other)
  Sender: FDA-Public Use
  Company Number: GB-WATSON-2016-02292

PATIENT
  Sex: Male

DRUGS (1)
  1. VERAPAMIL (UNKNOWN) [Suspect]
     Active Substance: VERAPAMIL HYDROCHLORIDE
     Indication: PRODUCT USED FOR UNKNOWN INDICATION
     Dosage: 240 MG, UNKNOWN
     Route: 048

REACTIONS (1)
  - Cerebrovascular accident [Unknown]
